FAERS Safety Report 12830379 (Version 1)
Quarter: 2016Q4

REPORT INFORMATION
  Report Type: Spontaneous
  Country: US (occurrence: US)
  Receive Date: 20161007
  Receipt Date: 20161007
  Transmission Date: 20170207
  Serious: No
  Sender: FDA-Public Use
  Company Number: US-SA-2016SA128095

PATIENT
  Age: 55 Year
  Sex: Female

DRUGS (5)
  1. ACYCLOVIR. [Concomitant]
     Active Substance: ACYCLOVIR
  2. AUBAGIO [Suspect]
     Active Substance: TERIFLUNOMIDE
     Indication: ATAXIA
     Route: 048
     Dates: start: 20160626, end: 20160710
  3. TRIMETHOPRIM/SULFAMETHOXAZOLE [Concomitant]
  4. LYRICA [Concomitant]
     Active Substance: PREGABALIN
  5. ALPRAZOLAM. [Concomitant]
     Active Substance: ALPRAZOLAM

REACTIONS (5)
  - Hypoaesthesia [Not Recovered/Not Resolved]
  - Condition aggravated [Not Recovered/Not Resolved]
  - Dyspnoea [Not Recovered/Not Resolved]
  - Pain in extremity [Not Recovered/Not Resolved]
  - Dizziness [Unknown]

NARRATIVE: CASE EVENT DATE: 201606
